FAERS Safety Report 9346753 (Version 1)
Quarter: 2013Q2

REPORT INFORMATION
  Report Type: Spontaneous
  Country: AU (occurrence: AU)
  Receive Date: 20130613
  Receipt Date: 20130613
  Transmission Date: 20140414
  Serious: Yes (Hospitalization, Other)
  Sender: FDA-Public Use
  Company Number: AU-ALEXION PHARMACEUTICALS INC.-A201301359

PATIENT
  Age: 42 Year
  Sex: Male

DRUGS (2)
  1. SOLIRIS 300MG [Suspect]
     Indication: PAROXYSMAL NOCTURNAL HAEMOGLOBINURIA
     Dosage: 900 MG, Q2W
     Route: 042
     Dates: start: 201105
  2. PREDNISONE [Concomitant]
     Indication: HYPERSENSITIVITY
     Dosage: 25 MG, PRN

REACTIONS (4)
  - Incision site infection [Recovering/Resolving]
  - Malignant melanoma [Unknown]
  - Chromaturia [Recovered/Resolved]
  - Urticaria [Recovered/Resolved]
